FAERS Safety Report 19490113 (Version 1)
Quarter: 2021Q3

REPORT INFORMATION
  Report Type: Spontaneous
  Country: US (occurrence: US)
  Receive Date: 20210705
  Receipt Date: 20210705
  Transmission Date: 20211014
  Serious: No
  Sender: FDA-Public Use
  Company Number: US-ASTRAZENECA-2021A532480

PATIENT
  Age: 66 Year
  Sex: Male
  Weight: 84.8 kg

DRUGS (11)
  1. BRILINTA [Suspect]
     Active Substance: TICAGRELOR
     Indication: MYOCARDIAL INFARCTION
     Route: 048
     Dates: start: 20201010
  2. LIPITOR [Concomitant]
     Active Substance: ATORVASTATIN CALCIUM
  3. DUMAX [Concomitant]
  4. BUTAMAX [Concomitant]
  5. FLONASE [Concomitant]
     Active Substance: FLUTICASONE PROPIONATE
  6. DIGOXIN. [Concomitant]
     Active Substance: DIGOXIN
  7. ENTRESTO [Concomitant]
     Active Substance: SACUBITRIL\VALSARTAN
  8. PANTOPROZOLE [Concomitant]
     Active Substance: PANTOPRAZOLE SODIUM
  9. POTASSIUM [Concomitant]
     Active Substance: POTASSIUM
  10. METOPROLOL SUCCINATE. [Concomitant]
     Active Substance: METOPROLOL SUCCINATE
  11. NTG [Concomitant]
     Active Substance: NITROGLYCERIN

REACTIONS (2)
  - Vascular pseudoaneurysm [Unknown]
  - Weight decreased [Not Recovered/Not Resolved]

NARRATIVE: CASE EVENT DATE: 202010
